FAERS Safety Report 5448831-3 (Version None)
Quarter: 2007Q3

REPORT INFORMATION
  Report Type: 
  Country: None (occurrence: None)
  Receive Date: 20070911
  Receipt Date: 20070710
  Transmission Date: 20080115
  Serious: No
  Sender: FDA-Public Use
  Company Number: US-BRISTOL-MYERS SQUIBB COMPANY-13840285

PATIENT
  Sex: Female

DRUGS (10)
  1. EMSAM [Suspect]
     Dates: start: 20070101
  2. TOPAMAX [Concomitant]
  3. GABAPENTIN [Concomitant]
  4. LAMICTAL [Concomitant]
  5. LEVOXYL [Concomitant]
  6. ENALAPRIL [Concomitant]
  7. COREG [Concomitant]
  8. EVISTA [Concomitant]
  9. KLONOPIN [Concomitant]
  10. ATIVAN [Concomitant]

REACTIONS (1)
  - DRUG INEFFECTIVE [None]
